FAERS Safety Report 6635747-X (Version None)
Quarter: 2010Q1

REPORT INFORMATION
  Report Type: 
  Country: None (occurrence: None)
  Receive Date: 20100310
  Receipt Date: 20100223
  Transmission Date: 20100710
  Serious: Yes (Other)
  Sender: FDA-Public Use
  Company Number: 2010SCPR000368

PATIENT
  Age: 59 Year
  Sex: Female

DRUGS (1)
  1. DOXYCYCLINE (DOXYCYCLINE MONOHYDRATE) [Suspect]
     Indication: MALARIA PROPHYLAXIS

REACTIONS (3)
  - CYTOLYTIC HEPATITIS [None]
  - DRUG RASH WITH EOSINOPHILIA AND SYSTEMIC SYMPTOMS [None]
  - MONONUCLEOSIS SYNDROME [None]
